FAERS Safety Report 25186705 (Version 3)
Quarter: 2025Q4

REPORT INFORMATION
  Report Type: Report from Study
  Country: EU (occurrence: EU)
  Receive Date: 20250411
  Receipt Date: 20251224
  Transmission Date: 20260117
  Serious: Yes (Hospitalization)
  Sender: ABBVIE
  Company Number: EU-ABBVIE-6212156

PATIENT
  Age: 73 Year
  Sex: Male

DRUGS (32)
  1. FOSCARBIDOPA\FOSLEVODOPA [Suspect]
     Active Substance: FOSCARBIDOPA\FOSLEVODOPA
     Indication: Parkinson^s disease
     Dosage: LOADING DOSE DRUG: 1.2 ML?CONTINUOUS RATE PUMP SETTING BASE 0.40 ML/H?CONTINUOUS RATE PUMP SETTIN...
     Route: 058
     Dates: start: 20240626, end: 20240626
  2. FOSCARBIDOPA\FOSLEVODOPA [Suspect]
     Active Substance: FOSCARBIDOPA\FOSLEVODOPA
     Dosage: LOADING DOSE DRUG: 1.2 ML?CONTINUOUS RATE PUMP SETTING BASE 0.3 ML/H?CONTINUOUS RATE PUMP SETTING...
     Route: 058
     Dates: start: 20240626, end: 20240627
  3. FOSCARBIDOPA\FOSLEVODOPA [Suspect]
     Active Substance: FOSCARBIDOPA\FOSLEVODOPA
     Dosage: LOADING DOSE DRUG: 1.2 ML?CONTINUOUS RATE PUMP SETTING BASE 0.40 ML/H?CONTINUOUS RATE PUMP SETTIN...
     Route: 058
     Dates: start: 20240627, end: 20240701
  4. FOSCARBIDOPA\FOSLEVODOPA [Suspect]
     Active Substance: FOSCARBIDOPA\FOSLEVODOPA
     Dosage: LOADING DOSE DRUG: 1.2 ML?CONTINUOUS RATE PUMP SETTING BASE 0.4 ML/H?CONTINUOUS RATE PUMP SETTING...
     Route: 058
     Dates: start: 20240701, end: 20241008
  5. FOSCARBIDOPA\FOSLEVODOPA [Suspect]
     Active Substance: FOSCARBIDOPA\FOSLEVODOPA
     Dosage: LOADING DOSE DRUG: 0.42 ML?CONTINUOUS RATE PUMP SETTING BASE 0.42 ML/H?CONTINUOUS RATE PUMP SETTI...
     Route: 058
     Dates: start: 20241008, end: 20241113
  6. FOSCARBIDOPA\FOSLEVODOPA [Suspect]
     Active Substance: FOSCARBIDOPA\FOSLEVODOPA
     Dosage: CONTINUOUS RATE PUMP SETTING BASE 0.35 ML/H?CONTINUOUS RATE PUMP SETTING HIGH  0.38 ML/H?CONTINUO...
     Route: 058
     Dates: start: 20241113, end: 20241117
  7. FOSCARBIDOPA\FOSLEVODOPA [Suspect]
     Active Substance: FOSCARBIDOPA\FOSLEVODOPA
     Dosage: CONTINUOUS RATE PUMP SETTING BASE 0.40 ML/H?CONTINUOUS RATE PUMP SETTING HIGH  0.42 ML/H?CONTINUO...
     Route: 058
     Dates: start: 20241117, end: 20241119
  8. FOSCARBIDOPA\FOSLEVODOPA [Suspect]
     Active Substance: FOSCARBIDOPA\FOSLEVODOPA
     Dosage: CONTINUOUS RATE PUMP SETTING BASE 0.38 ML/H?CONTINUOUS RATE PUMP SETTING HIGH  0.40 ML/H?CONTINUO...
     Route: 058
     Dates: start: 20241119, end: 20241205
  9. GABAPENTIN [Concomitant]
     Active Substance: GABAPENTIN
     Indication: Pain
     Route: 048
     Dates: start: 20230511
  10. POTASSIUM CHLORIDE [Concomitant]
     Active Substance: POTASSIUM CHLORIDE
     Indication: Constipation
     Dosage: TIME INTERVAL: AS NECESSARY: 2 SACHET
     Route: 048
     Dates: start: 20200911
  11. POLYETHYLENE GLYCOL 3350 [Concomitant]
     Active Substance: POLYETHYLENE GLYCOL 3350
     Indication: Constipation
     Dosage: TIME INTERVAL: AS NECESSARY: 2 SACHET
     Route: 048
     Dates: start: 20200911
  12. SODIUM BICARBONATE [Concomitant]
     Active Substance: SODIUM BICARBONATE
     Indication: Constipation
     Dosage: TIME INTERVAL: AS NECESSARY: 2 SACHET
     Route: 048
     Dates: start: 20200911
  13. SODIUM CHLORIDE [Concomitant]
     Active Substance: SODIUM CHLORIDE
     Indication: Constipation
     Dosage: TIME INTERVAL: AS NECESSARY: 2 SACHET
     Route: 048
     Dates: start: 20200911
  14. VITAMIN B12 [Concomitant]
     Active Substance: CYANOCOBALAMIN
     Indication: Vitamin B12 deficiency
     Route: 048
     Dates: start: 20240129, end: 20241128
  15. ACETAMINOPHEN [Concomitant]
     Active Substance: ACETAMINOPHEN
     Indication: Pain management
     Dosage: TIME INTERVAL: AS NECESSARY
     Route: 048
     Dates: start: 20180917
  16. ACETAMINOPHEN [Concomitant]
     Active Substance: ACETAMINOPHEN
     Indication: Pain management
     Route: 048
     Dates: start: 20241023
  17. TADALAFIL [Concomitant]
     Active Substance: TADALAFIL
     Indication: Benign prostatic hyperplasia
     Route: 048
     Dates: start: 20140209
  18. CLOZAPINE [Concomitant]
     Active Substance: CLOZAPINE
     Indication: Psychotic disorder
     Route: 048
     Dates: start: 20241126, end: 20241213
  19. CLOZAPINE [Concomitant]
     Active Substance: CLOZAPINE
     Indication: Psychotic disorder
     Route: 048
     Dates: start: 20241213
  20. RINGER LAKTAT [Concomitant]
     Indication: Psychotic disorder
     Route: 042
     Dates: start: 20241205, end: 20241205
  21. DONEPEZIL [Concomitant]
     Active Substance: DONEPEZIL
     Indication: Psychotic disorder
     Route: 048
     Dates: start: 20241212, end: 20241217
  22. ZOPICLONE [Concomitant]
     Active Substance: ZOPICLONE
     Indication: Psychotic disorder
     Route: 048
     Dates: start: 20241212, end: 20241212
  23. QUETIAPINE [Concomitant]
     Active Substance: QUETIAPINE
     Indication: Psychotic disorder
     Route: 048
     Dates: start: 20241212, end: 20241212
  24. NITROGLYCERIN [Concomitant]
     Active Substance: NITROGLYCERIN
     Indication: Cardiac arrest
     Route: 060
     Dates: start: 20241228, end: 20241228
  25. PANTOPRAZOLE SODIUM [Concomitant]
     Active Substance: PANTOPRAZOLE SODIUM
     Indication: Prophylaxis
     Route: 048
     Dates: start: 201303, end: 20241025
  26. PANTOPRAZOLE SODIUM [Concomitant]
     Active Substance: PANTOPRAZOLE SODIUM
     Indication: Prophylaxis
     Route: 048
     Dates: start: 20241229
  27. SINEMET [Concomitant]
     Active Substance: CARBIDOPA\LEVODOPA
     Indication: Parkinson^s disease
     Route: 048
     Dates: start: 20241205
  28. OPICAPONE [Concomitant]
     Active Substance: OPICAPONE
     Indication: Parkinson^s disease
     Route: 048
     Dates: start: 20241209
  29. ROPINIROLE [Concomitant]
     Active Substance: ROPINIROLE
     Indication: Parkinson^s disease
     Route: 048
     Dates: start: 20160530, end: 20241113
  30. ROPINIROLE [Concomitant]
     Active Substance: ROPINIROLE
     Indication: Parkinson^s disease
     Route: 048
     Dates: start: 20241114, end: 20241125
  31. ROPINIROLE [Concomitant]
     Active Substance: ROPINIROLE
     Indication: Parkinson^s disease
     Route: 048
     Dates: start: 20241125, end: 20241127
  32. ROPINIROLE [Concomitant]
     Active Substance: ROPINIROLE
     Indication: Parkinson^s disease
     Route: 048
     Dates: start: 20241114, end: 20241125

REACTIONS (3)
  - Pulmonary embolism [Not Recovered/Not Resolved]
  - Dyspnoea [Recovered/Resolved]
  - Pneumonia [Not Recovered/Not Resolved]

NARRATIVE: CASE EVENT DATE: 20241226
